FAERS Safety Report 5144799-8 (Version None)
Quarter: 2006Q4

REPORT INFORMATION
  Report Type: 
  Country: None (occurrence: None)
  Receive Date: 20061107
  Receipt Date: 20061025
  Transmission Date: 20070319
  Serious: Yes (Hospitalization, Other)
  Sender: FDA-Public Use
  Company Number: PHEH2006US13338

PATIENT
  Age: 61 Year
  Sex: Female

DRUGS (3)
  1. LOTENSIN [Suspect]
     Indication: HYPERTENSION
     Dosage: 5 MG, QD
     Dates: start: 19860101, end: 20060801
  2. LOTENSIN [Suspect]
     Dosage: 10 MG, QD
     Dates: start: 20060801
  3. SYNTHROID [Concomitant]
     Indication: HYPOTHYROIDISM

REACTIONS (7)
  - BACK PAIN [None]
  - CEREBROVASCULAR ACCIDENT [None]
  - DROOLING [None]
  - DYSARTHRIA [None]
  - FALL [None]
  - HYPERTENSION [None]
  - LIMB INJURY [None]
